FAERS Safety Report 6326831-9 (Version None)
Quarter: 2009Q3

REPORT INFORMATION
  Report Type: 
  Country: None (occurrence: None)
  Receive Date: 20090825
  Receipt Date: 20090814
  Transmission Date: 20100115
  Serious: Yes (Other)
  Sender: FDA-Public Use
  Company Number: FR-JNJFOC-20080702410

PATIENT
  Age: 73 Year
  Sex: Male

DRUGS (9)
  1. REMICADE [Suspect]
     Indication: CROHN'S DISEASE
     Route: 042
  2. REMICADE [Suspect]
     Indication: ANKYLOSING SPONDYLITIS
     Route: 042
  3. PENTASA [Concomitant]
     Indication: CROHN'S DISEASE
  4. MONOCRIXO [Concomitant]
  5. KARDEGIC [Concomitant]
     Route: 048
  6. CORTANCYL [Concomitant]
  7. LACTOSE MONOHYDRATE [Concomitant]
  8. PREDNISONE TALC AMIDON [Concomitant]
  9. MAGNESIUM STEARATE [Concomitant]

REACTIONS (1)
  - CHRONIC LYMPHOCYTIC LEUKAEMIA [None]
